FAERS Safety Report 4529342-6 (Version None)
Quarter: 2004Q4

REPORT INFORMATION
  Report Type: 
  Country: None (occurrence: None)
  Receive Date: 20041216
  Receipt Date: 20041210
  Transmission Date: 20050328
  Serious: Yes (Hospitalization)
  Sender: FDA-Public Use
  Company Number: US-ABBOTT-04P-163-0282882-00

PATIENT
  Age: 70 Year
  Sex: Female

DRUGS (6)
  1. TRIDIONE 150MG [Suspect]
     Indication: CONVULSION
     Route: 048
     Dates: start: 19430101
  2. PHENYTOIN SODIUM [Concomitant]
     Indication: CONVULSION
     Route: 048
  3. LEVOTHYROXINE SODIUM [Concomitant]
     Indication: HYPERPARATHYROIDISM
     Route: 048
     Dates: start: 19800101
  4. CALCITRIOL [Concomitant]
     Indication: HYPERPARATHYROIDISM
     Route: 048
     Dates: start: 19800101
  5. CANDESARTAN CILEXETIL [Concomitant]
     Indication: BLOOD PRESSURE
     Dosage: 32/12.5 MG
     Route: 048
     Dates: start: 20020101
  6. PHENOBARBITAL TAB [Concomitant]
     Indication: CONVULSION
     Route: 048

REACTIONS (2)
  - BLOOD CALCIUM INCREASED [None]
  - RENAL IMPAIRMENT [None]
